FAERS Safety Report 5481682-2 (Version None)
Quarter: 2007Q4

REPORT INFORMATION
  Report Type: 
  Country: None (occurrence: None)
  Receive Date: 20071010
  Receipt Date: 20071005
  Transmission Date: 20080405
  Serious: Yes (Hospitalization)
  Sender: FDA-Public Use
  Company Number: RU-BRISTOL-MYERS SQUIBB COMPANY-13739800

PATIENT
  Age: 63 Year
  Sex: Female

DRUGS (9)
  1. SAXAGLIPTIN [Suspect]
     Indication: TYPE 2 DIABETES MELLITUS
     Route: 048
     Dates: start: 20070327, end: 20070404
  2. BLINDED: PLACEBO [Suspect]
     Indication: TYPE 2 DIABETES MELLITUS
     Route: 048
     Dates: start: 20070327, end: 20070404
  3. METFORMIN HCL [Suspect]
     Dates: start: 20070327, end: 20070404
  4. ENALAPRIL MALEATE AND HYDROCHLOROTHIAZIDE [Concomitant]
     Dosage: ENALAPRIL-HYPOTHIAZIDE 20/12.5MG
     Dates: start: 20061219
  5. DIGOXIN [Concomitant]
     Dates: start: 20030601
  6. VINPOCETINE [Concomitant]
     Dates: start: 20061219
  7. SOTALOL HYDROCHLORIDE [Concomitant]
     Dates: start: 20070311
  8. ASPIRIN [Concomitant]
     Dates: start: 20060601
  9. DROTAVERINE [Concomitant]
     Route: 048
     Dates: start: 20070329, end: 20070404

REACTIONS (2)
  - GASTRITIS EROSIVE [None]
  - PANCREATITIS ACUTE [None]
